FAERS Safety Report 9742149 (Version 1)
Quarter: 2013Q4

REPORT INFORMATION
  Report Type: Spontaneous
  Country: US (occurrence: US)
  Receive Date: 20131210
  Receipt Date: 20131210
  Transmission Date: 20140711
  Serious: No
  Sender: FDA-Public Use
  Company Number: US-PFIZER INC-2013347921

PATIENT
  Age: 61 Year
  Sex: Male

DRUGS (2)
  1. TOVIAZ [Suspect]
     Indication: MICTURITION DISORDER
     Dosage: 8 MG, DAILY
  2. TOVIAZ [Suspect]
     Dosage: UNK

REACTIONS (2)
  - Wrong technique in drug usage process [Unknown]
  - Drug ineffective [Unknown]
